FAERS Safety Report 15537583 (Version 4)
Quarter: 2018Q4

REPORT INFORMATION
  Report Type: Report from Study
  Country: US (occurrence: US)
  Receive Date: 20181022
  Receipt Date: 20181226
  Transmission Date: 20190205
  Serious: Yes (Other)
  Sender: FDA-Public Use
  Company Number: US-PFIZER INC-2018400485

PATIENT
  Age: 48 Year
  Sex: Female

DRUGS (1)
  1. IBRANCE [Suspect]
     Active Substance: PALBOCICLIB
     Indication: BREAST CANCER FEMALE
     Dosage: 125 MG, (ONCE A DAY DAILY 21 DAYS OF MEDICATION, 7 DAYS OFF FOR A 28 DAY CYCLE)
     Route: 048
     Dates: start: 20180916

REACTIONS (5)
  - Fatigue [Unknown]
  - White blood cell count decreased [Not Recovered/Not Resolved]
  - Bone marrow failure [Unknown]
  - Headache [Recovered/Resolved]
  - Alopecia [Not Recovered/Not Resolved]

NARRATIVE: CASE EVENT DATE: 2018
